FAERS Safety Report 23382733 (Version 3)
Quarter: 2024Q2

REPORT INFORMATION
  Report Type: Spontaneous
  Country: US (occurrence: US)
  Receive Date: 20240109
  Receipt Date: 20240408
  Transmission Date: 20240716
  Serious: Yes (Hospitalization, Other)
  Sender: FDA-Public Use
  Company Number: US-PFIZER INC-202200149620

PATIENT
  Age: 68 Year
  Sex: Female
  Weight: 49.895 kg

DRUGS (11)
  1. XELJANZ XR [Suspect]
     Active Substance: TOFACITINIB CITRATE
     Indication: Rheumatoid arthritis
     Dosage: 11 MG, 1X/DAY
     Route: 048
     Dates: start: 2015
  2. ATORVASTATIN [Concomitant]
     Active Substance: ATORVASTATIN
  3. XARELTO [Concomitant]
     Active Substance: RIVAROXABAN
  4. BUSPIRONE [Concomitant]
     Active Substance: BUSPIRONE HYDROCHLORIDE
  5. DULOXETINE [Concomitant]
     Active Substance: DULOXETINE
  6. HYDROXYCHLOROQUINE SULFATE [Concomitant]
     Active Substance: HYDROXYCHLOROQUINE SULFATE
  7. AMLODIPINE [Concomitant]
     Active Substance: AMLODIPINE BESYLATE
  8. MORPHINE [Concomitant]
     Active Substance: MORPHINE
  9. ASPIRIN [Concomitant]
     Active Substance: ASPIRIN
  10. GABAPENTIN [Concomitant]
     Active Substance: GABAPENTIN
  11. PROLIA [Concomitant]
     Active Substance: DENOSUMAB

REACTIONS (5)
  - Cerebrovascular accident [Not Recovered/Not Resolved]
  - Cerebral thrombosis [Not Recovered/Not Resolved]
  - Atrial fibrillation [Not Recovered/Not Resolved]
  - Joint swelling [Not Recovered/Not Resolved]
  - Onychomadesis [Not Recovered/Not Resolved]
